FAERS Safety Report 9441819 (Version 2)
Quarter: 2013Q4

REPORT INFORMATION
  Report Type: Spontaneous
  Country: US (occurrence: US)
  Receive Date: 20130806
  Receipt Date: 20131231
  Transmission Date: 20140711
  Serious: No
  Sender: FDA-Public Use
  Company Number: US-PFIZER INC-2013223811

PATIENT
  Age: 77 Year
  Sex: Male
  Weight: 81.63 kg

DRUGS (2)
  1. VIAGRA [Suspect]
     Indication: ERECTILE DYSFUNCTION
     Dosage: UNK, AS NEEDED
     Route: 048
     Dates: start: 2006
  2. VIAGRA [Suspect]
     Dosage: 100 MG, AS NEEDED
     Route: 048

REACTIONS (3)
  - Visual impairment [Recovered/Resolved]
  - Nasal congestion [Recovered/Resolved]
  - Drug ineffective [Recovering/Resolving]
